FAERS Safety Report 12969391 (Version 1)
Quarter: 2016Q4

REPORT INFORMATION
  Report Type: Spontaneous
  Country: ES (occurrence: ES)
  Receive Date: 20161123
  Receipt Date: 20161123
  Transmission Date: 20170207
  Serious: Yes (Other)
  Sender: FDA-Public Use
  Company Number: ES-PFIZER INC-2016544396

PATIENT
  Sex: Male

DRUGS (3)
  1. RELERT [Suspect]
     Active Substance: ELETRIPTAN HYDROBROMIDE
     Indication: MIGRAINE
     Dosage: UNK
     Route: 048
     Dates: start: 20160802
  2. ZONEGRAN [Suspect]
     Active Substance: ZONISAMIDE
     Dosage: 25 MG, 2X/DAY
     Route: 048
     Dates: start: 201609, end: 2016
  3. ZONEGRAN [Suspect]
     Active Substance: ZONISAMIDE
     Indication: MIGRAINE
     Dosage: 25 MG, 1X/DAY
     Route: 048
     Dates: start: 20160802, end: 201609

REACTIONS (2)
  - Dizziness [Recovered/Resolved]
  - Aphasia [Recovered/Resolved]

NARRATIVE: CASE EVENT DATE: 20160905
